FAERS Safety Report 10272932 (Version 1)
Quarter: 2014Q2

REPORT INFORMATION
  Report Type: Spontaneous
  Country: US (occurrence: None)
  Receive Date: 20140630
  Receipt Date: 20140630
  Transmission Date: 20141212
  Serious: Yes (Other)
  Sender: FDA-Public Use
  Company Number: US-ALKEM-000621

PATIENT
  Age: 70 Year
  Sex: Female

DRUGS (14)
  1. GABAPENTIN (GABAPENTIN) [Suspect]
     Indication: PAIN
     Dosage: 3000.00000000-MG-2.00 TIMES PER-1.0DAYS
  2. CLONIDINE (CLONIDINE) [Suspect]
     Indication: PRODUCT USED FOR UNKNOWN INDICATION
  3. TRAMADOL (TRAMADOL) [Suspect]
     Indication: PRODUCT USED FOR UNKNOWN INDICATION
  4. NIACIN (NIACIN) [Concomitant]
  5. PRAVASTATIN (PRAVASTATIN) [Concomitant]
  6. FUROSEMIDE (FUROSEMIDE) [Concomitant]
  7. MEGESTROL (MEGESTROL) [Concomitant]
  8. ASPIRIN (ASPIRIN) [Concomitant]
  9. METOPROLOL (METOPROLOL) [Concomitant]
  10. BISACODYL (BISACODYL) [Concomitant]
  11. DOXAZOSIN (DOXAZOSIN) [Concomitant]
  12. HYDROCODONE/ACETAQMINOPHEN (HYDROCODONE/ACETAMINOPHEN) [Concomitant]
  13. HYDRALAZINE (HYDRALAZINE) [Concomitant]
  14. AMLODIPINE (AMLODIPINE) [Concomitant]

REACTIONS (4)
  - Lumbar spinal stenosis [None]
  - Chorea [None]
  - Tardive dyskinesia [None]
  - Drug interaction [None]
